FAERS Safety Report 8478595-0 (Version None)
Quarter: 2012Q2

REPORT INFORMATION
  Report Type: 
  Country: None (occurrence: None)
  Receive Date: 20120621
  Receipt Date: 20120605
  Transmission Date: 20120825
  Serious: Yes (Hospitalization)
  Sender: FDA-Public Use
  Company Number: DSA_57847_2012

PATIENT
  Age: 42 Year
  Sex: Female
  Weight: 103 kg

DRUGS (2)
  1. ENALAPRIL MALEATE [Suspect]
     Indication: HYPERTENSION
     Dosage: (20 MG QD ORAL)
     Route: 048
  2. ATENOLOL [Concomitant]

REACTIONS (14)
  - FATIGUE [None]
  - OXYGEN SATURATION DECREASED [None]
  - CHEST PAIN [None]
  - OEDEMA PERIPHERAL [None]
  - NOCTURIA [None]
  - SNORING [None]
  - ATRIAL FIBRILLATION [None]
  - SLEEP APNOEA SYNDROME [None]
  - ANGINA PECTORIS [None]
  - DYSPNOEA [None]
  - HYPOTHYROIDISM [None]
  - HYPERTENSION [None]
  - RALES [None]
  - ELECTROCARDIOGRAM T WAVE INVERSION [None]
